FAERS Safety Report 25986867 (Version 1)
Quarter: 2025Q4

REPORT INFORMATION
  Report Type: Spontaneous
  Country: EU (occurrence: None)
  Receive Date: 20251102
  Receipt Date: 20251102
  Transmission Date: 20260117
  Serious: Yes (Hospitalization)
  Sender: ENDO
  Company Number: EU-ENDO USA, INC.-2025-001888

PATIENT
  Sex: Male

DRUGS (5)
  1. AVEED [Suspect]
     Active Substance: TESTOSTERONE UNDECANOATE
     Indication: Muscle building therapy
     Dosage: 750 MILLIGRAM, WEEKLY (APPROXIMATELY 10 YEARS AGO)
  2. TRENBOLONE ENANTHATE [Suspect]
     Active Substance: TRENBOLONE ENANTHATE
     Indication: Muscle building therapy
     Dosage: 200 MILLIGRAM, TIW
  3. TRENBOLONE ENANTHATE [Suspect]
     Active Substance: TRENBOLONE ENANTHATE
     Indication: Muscle building therapy
     Dosage: 60 MILLIGRAM, WEEKLY (ONCE A WEEK)
  4. INSULIN NOS [Suspect]
     Active Substance: INSULIN NOS
     Indication: Product used for unknown indication
     Dosage: APPROXIMATELY 40 UNITS OF INSULIN (1 UNIT TO COVER 10 G OF GLUCOSE)
     Route: 065
  5. PROTEIN [Suspect]
     Active Substance: PROTEIN
     Indication: Product used for unknown indication
     Dosage: 240-260 GM, DAILY
     Route: 065

REACTIONS (8)
  - Focal segmental glomerulosclerosis [Recovered/Resolved]
  - Nephrotic syndrome [Recovered/Resolved]
  - Left ventricular hypertrophy [Recovered/Resolved]
  - Drug abuse [Recovered/Resolved]
  - Mental disorder [Recovered/Resolved]
  - Weight decreased [Recovered/Resolved]
  - Acne [Recovered/Resolved]
  - Product use in unapproved indication [Recovered/Resolved]
